FAERS Safety Report 11564496 (Version 1)
Quarter: 2015Q3

REPORT INFORMATION
  Report Type: Spontaneous
  Country: US (occurrence: US)
  Receive Date: 20150916
  Receipt Date: 20150916
  Transmission Date: 20151125
  Serious: No
  Sender: FDA-Public Use
  Company Number: US-ELI_LILLY_AND_COMPANY-US200903005116

PATIENT
  Age: 60 Year
  Sex: Female

DRUGS (2)
  1. ANALGESICS [Concomitant]
     Active Substance: UNSPECIFIED INGREDIENT
  2. FORTEO [Suspect]
     Active Substance: TERIPARATIDE
     Dosage: 20 UG, DAILY (1/D)
     Route: 058
     Dates: start: 20081211

REACTIONS (5)
  - Accidental overdose [Unknown]
  - Medication error [Unknown]
  - Medication error [Unknown]
  - Anger [Unknown]
  - Accidental overdose [Unknown]

NARRATIVE: CASE EVENT DATE: 20090314
